FAERS Safety Report 20655151 (Version 1)
Quarter: 2022Q1

REPORT INFORMATION
  Report Type: Spontaneous
  Country: US (occurrence: US)
  Receive Date: 20220330
  Receipt Date: 20220330
  Transmission Date: 20220423
  Serious: No
  Sender: FDA-Public Use
  Company Number: US-PFIZER INC-2021774609

PATIENT
  Age: 57 Year
  Sex: Female

DRUGS (1)
  1. IBRANCE [Suspect]
     Active Substance: PALBOCICLIB
     Indication: Breast cancer female
     Dosage: 75 MG, CYCLIC [75MG QDX14D]
     Dates: start: 20210113

REACTIONS (4)
  - Product dose omission issue [Unknown]
  - Dry skin [Unknown]
  - Fatigue [Unknown]
  - COVID-19 [Unknown]
